FAERS Safety Report 12514589 (Version 1)
Quarter: 2016Q2

REPORT INFORMATION
  Report Type: Spontaneous
  Country: US (occurrence: None)
  Receive Date: 20160629
  Receipt Date: 20160629
  Transmission Date: 20160815
  Serious: No
  Sender: FDA-Public Use
  Company Number: None

PATIENT
  Age: 69 Year
  Sex: Male

DRUGS (10)
  1. MELOXICAM. [Concomitant]
     Active Substance: MELOXICAM
  2. PERPHENAZINE. [Concomitant]
     Active Substance: PERPHENAZINE
  3. DORZOLAMIDE [Concomitant]
     Active Substance: DORZOLAMIDE
  4. CARBAMAZEPINE. [Suspect]
     Active Substance: CARBAMAZEPINE
     Route: 048
     Dates: start: 20150803, end: 20150810
  5. LATANOPROST. [Concomitant]
     Active Substance: LATANOPROST
  6. TIMOLOL. [Concomitant]
     Active Substance: TIMOLOL
  7. PHENYTOIN ER [Concomitant]
     Active Substance: PHENYTOIN SODIUM
  8. BRIMONIDINE [Concomitant]
     Active Substance: BRIMONIDINE TARTRATE
  9. TERAZOSIN [Concomitant]
     Active Substance: TERAZOSIN\TERAZOSIN HYDROCHLORIDE
  10. LEVETIRACETAM. [Concomitant]
     Active Substance: LEVETIRACETAM

REACTIONS (1)
  - Contraindicated drug administered [None]

NARRATIVE: CASE EVENT DATE: 20150809
